FAERS Safety Report 12955838 (Version 2)
Quarter: 2016Q4

REPORT INFORMATION
  Report Type: Spontaneous
  Country: US (occurrence: US)
  Receive Date: 20161118
  Receipt Date: 20161206
  Transmission Date: 20170207
  Serious: No
  Sender: FDA-Public Use
  Company Number: US-GLAXOSMITHKLINE-US2016168935

PATIENT
  Age: 83 Year
  Sex: Female

DRUGS (2)
  1. VOLTAREN [Suspect]
     Active Substance: DICLOFENAC SODIUM
     Dosage: UNK
     Dates: start: 201606, end: 201607
  2. VOLTAREN [Suspect]
     Active Substance: DICLOFENAC SODIUM
     Indication: ARTHRITIS
     Dosage: UNK
     Dates: start: 2015

REACTIONS (10)
  - Wrist fracture [Not Recovered/Not Resolved]
  - Drug administered at inappropriate site [Unknown]
  - Fall [Not Recovered/Not Resolved]
  - Dizziness [Unknown]
  - Wrong technique in product usage process [Unknown]
  - Arthropathy [Recovering/Resolving]
  - Inappropriate schedule of drug administration [Unknown]
  - Vomiting [Unknown]
  - Malaise [Unknown]
  - Incorrect dose administered [Unknown]

NARRATIVE: CASE EVENT DATE: 2016
